FAERS Safety Report 12808797 (Version 2)
Quarter: 2016Q4

REPORT INFORMATION
  Report Type: Spontaneous
  Country: US (occurrence: US)
  Receive Date: 20161004
  Receipt Date: 20161114
  Transmission Date: 20170207
  Serious: No
  Sender: FDA-Public Use
  Company Number: US-ASTRAZENECA-2016SF00948

PATIENT
  Sex: Female
  Weight: 52.2 kg

DRUGS (1)
  1. BYDUREON [Suspect]
     Active Substance: EXENATIDE
     Indication: TYPE 1 DIABETES MELLITUS
     Route: 058
     Dates: start: 201606

REACTIONS (5)
  - Product use issue [Unknown]
  - Intentional device misuse [Unknown]
  - Drug dose omission [Unknown]
  - Device issue [Unknown]
  - Off label use [Unknown]
